FAERS Safety Report 8183845-4 (Version None)
Quarter: 2012Q1

REPORT INFORMATION
  Report Type: 
  Country: None (occurrence: None)
  Receive Date: 20120305
  Receipt Date: 20120301
  Transmission Date: 20120608
  Serious: Yes (Death, Other)
  Sender: FDA-Public Use
  Company Number: CO-PFIZER INC-2012056855

PATIENT
  Sex: Male

DRUGS (6)
  1. OLMESARTAN MEDOXOMIL AND HYDROCHLOROTHIZIDE [Suspect]
     Indication: HYPERTENSION
     Dosage: [OLMESARTAN MEDOXOMIL 20 MG]/[ HYDROCHLOROTHIAZIDE 12.5 MG], DAILY
     Dates: start: 20071003
  2. HYDROCHLOROTHIAZIDE [Concomitant]
     Indication: HYPERTENSION
     Dosage: 25 MG, 1X/DAY
  3. TIMOLOL MALEATE [Concomitant]
     Dosage: 2.5 MG, 1X/DAY
  4. LOSARTAN [Concomitant]
     Indication: HYPERTENSION
     Dosage: 25 MG, 1X/DAY
     Route: 048
  5. ASPIRIN [Concomitant]
     Dosage: 100 MG, 1X/DAY
  6. LIPITOR [Suspect]
     Indication: DYSLIPIDAEMIA
     Dosage: 20 MG, 1X/DAY
     Route: 048
     Dates: start: 20071003

REACTIONS (1)
  - DEATH [None]
